FAERS Safety Report 23359012 (Version 1)
Quarter: 2024Q1

REPORT INFORMATION
  Report Type: Spontaneous
  Country: US (occurrence: US)
  Receive Date: 20240102
  Receipt Date: 20240102
  Transmission Date: 20240410
  Serious: No
  Sender: FDA-Public Use
  Company Number: US-009507513-2312USA005649

PATIENT
  Age: 51 Year
  Sex: Female

DRUGS (5)
  1. KEYTRUDA [Suspect]
     Active Substance: PEMBROLIZUMAB
     Indication: Histiocytic sarcoma
     Dosage: 200 MILLIGRAM
  2. CYCLOPHOSPHAMIDE [Concomitant]
     Active Substance: CYCLOPHOSPHAMIDE
     Indication: Histiocytic sarcoma
     Dosage: 750 MILLIGRAM/SQ. METER
  3. DOXORUBICIN [Concomitant]
     Active Substance: DOXORUBICIN
     Indication: Histiocytic sarcoma
     Dosage: 50 MILLIGRAM/SQ. METER
  4. VINCRISTINE [Concomitant]
     Active Substance: VINCRISTINE
     Indication: Histiocytic sarcoma
     Dosage: CAPPED AT 1 MILLIGRAM
  5. PREDNISOLONE [Concomitant]
     Active Substance: PREDNISOLONE
     Indication: Histiocytic sarcoma
     Dosage: 100 MILLIGRAM FOR 5 DAYS

REACTIONS (1)
  - Off label use [Unknown]
